FAERS Safety Report 14556631 (Version 1)
Quarter: 2018Q1

REPORT INFORMATION
  Report Type: Spontaneous
  Country: US (occurrence: US)
  Receive Date: 20180221
  Receipt Date: 20180221
  Transmission Date: 20180509
  Serious: No
  Sender: FDA-Public Use
  Company Number: US-PFIZER INC-2018071568

PATIENT
  Age: 47 Year
  Sex: Male

DRUGS (1)
  1. CORTEF [Suspect]
     Active Substance: HYDROCORTISONE
     Dosage: 20 MG, 1X/DAY (EVERY MORNING)

REACTIONS (3)
  - Nausea [Unknown]
  - Drug dose omission [Unknown]
  - Fatigue [Unknown]
